FAERS Safety Report 21701711 (Version 3)
Quarter: 2024Q2

REPORT INFORMATION
  Report Type: Spontaneous
  Country: US (occurrence: US)
  Receive Date: 20221208
  Receipt Date: 20240520
  Transmission Date: 20240715
  Serious: No
  Sender: FDA-Public Use
  Company Number: US-PFIZER INC-PV202200119321

PATIENT
  Age: 72 Year
  Sex: Female

DRUGS (4)
  1. XELJANZ [Interacting]
     Active Substance: TOFACITINIB CITRATE
     Indication: Colitis ulcerative
     Dosage: 10 MG, 2X/DAY
  2. XELJANZ [Interacting]
     Active Substance: TOFACITINIB CITRATE
     Dosage: 5 MG, 2X/DAY
  3. ENTYVIO [Interacting]
     Active Substance: VEDOLIZUMAB
     Dosage: UNK
  4. STELARA [Interacting]
     Active Substance: USTEKINUMAB
     Dosage: UNK

REACTIONS (3)
  - Fatigue [Unknown]
  - Asthenia [Unknown]
  - Drug interaction [Unknown]
